FAERS Safety Report 15184397 (Version 4)
Quarter: 2019Q1

REPORT INFORMATION
  Report Type: Spontaneous
  Country: HR (occurrence: HR)
  Receive Date: 20180723
  Receipt Date: 20190314
  Transmission Date: 20190417
  Serious: Yes (Other)
  Sender: FDA-Public Use
  Company Number: PHHY2018HR016215

PATIENT
  Age: 43 Year
  Sex: Female

DRUGS (3)
  1. CICLOSPORIN [Suspect]
     Active Substance: CYCLOSPORINE
     Indication: BEHCET^S SYNDROME
     Dosage: 2 MG/KG, UNK
     Route: 065
  2. IRON [Concomitant]
     Active Substance: IRON
     Indication: IRON DEFICIENCY ANAEMIA
     Dosage: UNK
     Route: 065
  3. PREDNISONE. [Suspect]
     Active Substance: PREDNISONE
     Indication: BEHCET^S SYNDROME
     Dosage: 0.2-0.5 MG/KG, UNK
     Route: 048

REACTIONS (13)
  - Mouth ulceration [Unknown]
  - Depression [Unknown]
  - Erythema nodosum [Unknown]
  - Disease recurrence [Recovering/Resolving]
  - Cataract [Unknown]
  - Behcet^s syndrome [Recovering/Resolving]
  - Nephropathy toxic [Unknown]
  - Cushing^s syndrome [Unknown]
  - Dermatitis acneiform [Unknown]
  - Blood pressure increased [Recovered/Resolved]
  - Drug ineffective [Recovered/Resolved]
  - Body temperature increased [Unknown]
  - Product use in unapproved indication [Unknown]
